FAERS Safety Report 12638731 (Version 10)
Quarter: 2021Q3

REPORT INFORMATION
  Report Type: Report from Study
  Country: AU (occurrence: AU)
  Receive Date: 20160809
  Receipt Date: 20210819
  Transmission Date: 20211014
  Serious: Yes (Hospitalization, Other)
  Sender: FDA-Public Use
  Company Number: AU-BIOGEN-2016BI00275700

PATIENT
  Age: 55 Year
  Sex: Female

DRUGS (5)
  1. TECFIDERA [Suspect]
     Active Substance: DIMETHYL FUMARATE
     Route: 048
  2. TECFIDERA [Suspect]
     Active Substance: DIMETHYL FUMARATE
     Route: 048
  3. TECFIDERA [Suspect]
     Active Substance: DIMETHYL FUMARATE
     Dosage: MAINTENANCE DOSE
     Route: 048
  4. TECFIDERA [Suspect]
     Active Substance: DIMETHYL FUMARATE
     Dosage: MAINTENANCE DOSE
     Route: 048
     Dates: start: 20160630, end: 202103
  5. TECFIDERA [Suspect]
     Active Substance: DIMETHYL FUMARATE
     Indication: MULTIPLE SCLEROSIS
     Dosage: MAITENANCE DOSE
     Route: 048
     Dates: start: 20160630

REACTIONS (20)
  - Pneumonia aspiration [Recovered/Resolved]
  - Urinary tract infection [Unknown]
  - Urosepsis [Unknown]
  - Gastrointestinal haemorrhage [Unknown]
  - Product dose omission issue [Unknown]
  - Dysphagia [Recovered/Resolved]
  - Secondary progressive multiple sclerosis [Not Recovered/Not Resolved]
  - Pyrexia [Unknown]
  - Oesophageal candidiasis [Not Recovered/Not Resolved]
  - White blood cell count abnormal [Unknown]
  - Underdose [Not Recovered/Not Resolved]
  - Urinary incontinence [Not Recovered/Not Resolved]
  - Urinary tract infection [Recovered/Resolved]
  - Haemorrhagic stroke [Unknown]
  - Somnolence [Unknown]
  - Hiatus hernia [Not Recovered/Not Resolved]
  - Malaise [Unknown]
  - Fatigue [Unknown]
  - Hypoaesthesia [Not Recovered/Not Resolved]
  - Nephrolithiasis [Recovered/Resolved]

NARRATIVE: CASE EVENT DATE: 20160630
